FAERS Safety Report 24871575 (Version 1)
Quarter: 2025Q1

REPORT INFORMATION
  Report Type: Spontaneous
  Country: BR (occurrence: BR)
  Receive Date: 20250122
  Receipt Date: 20250122
  Transmission Date: 20250408
  Serious: Yes (Other)
  Sender: ROCHE
  Company Number: BR-ROCHE-10000185881

PATIENT
  Age: 73 Year
  Sex: Male

DRUGS (1)
  1. COTELLIC [Suspect]
     Active Substance: COBIMETINIB FUMARATE
     Indication: Product used for unknown indication
     Route: 048
     Dates: start: 20231209, end: 20240606

REACTIONS (2)
  - Ventricular hypokinesia [Recovered/Resolved]
  - Ejection fraction decreased [Recovered/Resolved]

NARRATIVE: CASE EVENT DATE: 20240606
